FAERS Safety Report 7447889-X (Version None)
Quarter: 2011Q2

REPORT INFORMATION
  Report Type: 
  Country: None (occurrence: None)
  Receive Date: 20110429
  Receipt Date: 20100608
  Transmission Date: 20111010
  Serious: No
  Sender: FDA-Public Use
  Company Number: US-ASTRAZENECA-2009UW19690

PATIENT
  Age: 66 Year
  Sex: Male
  Weight: 108.9 kg

DRUGS (4)
  1. NEXIUM [Suspect]
     Route: 048
     Dates: start: 20060101
  2. NEXIUM [Suspect]
     Route: 048
     Dates: start: 20060101
  3. NEXIUM [Suspect]
     Indication: EROSIVE OESOPHAGITIS
     Dosage: DAILY
     Route: 048
  4. NEXIUM [Suspect]
     Indication: DYSPEPSIA
     Dosage: DAILY
     Route: 048

REACTIONS (6)
  - BLOOD TRIGLYCERIDES INCREASED [None]
  - ARTHRALGIA [None]
  - DYSPEPSIA [None]
  - FLATULENCE [None]
  - HAEMOGLOBIN DECREASED [None]
  - CARTILAGE ATROPHY [None]
